FAERS Safety Report 6340661-3 (Version None)
Quarter: 2009Q3

REPORT INFORMATION
  Report Type: 
  Country: None (occurrence: None)
  Receive Date: 20090904
  Receipt Date: 20090821
  Transmission Date: 20100115
  Serious: Yes (Hospitalization, Other)
  Sender: FDA-Public Use
  Company Number: US-BAYER-200926295NA

PATIENT
  Sex: Female

DRUGS (3)
  1. BETASERON [Suspect]
     Indication: RELAPSING-REMITTING MULTIPLE SCLEROSIS
     Dosage: TOTAL DAILY DOSE: 8 MIU
     Route: 058
     Dates: end: 20090601
  2. AVONEX [Concomitant]
  3. TYSABRI [Concomitant]
     Dates: start: 20090728

REACTIONS (3)
  - KIDNEY INFECTION [None]
  - PULMONARY EMBOLISM [None]
  - URINARY TRACT INFECTION [None]
